FAERS Safety Report 13343763 (Version 1)
Quarter: 2017Q1

REPORT INFORMATION
  Report Type: Spontaneous
  Country: US (occurrence: US)
  Receive Date: 20170316
  Receipt Date: 20170316
  Transmission Date: 20170428
  Serious: No
  Sender: FDA-Public Use
  Company Number: US-PERRIGO-16US022921

PATIENT
  Age: 57 Year
  Sex: Male
  Weight: 82.86 kg

DRUGS (4)
  1. TESTOSTERONE. [Suspect]
     Active Substance: TESTOSTERONE
     Dosage: 50 MG QOD, 100 MG ON OPPOSITIE DAY (ALL APPLIED TO UPPER BODY)
     Route: 061
     Dates: start: 201612
  2. ATORVASTATIN [Concomitant]
     Active Substance: ATORVASTATIN
     Indication: PROPHYLAXIS
     Dosage: UNK
     Route: 048
     Dates: start: 2011
  3. TESTOSTERONE. [Suspect]
     Active Substance: TESTOSTERONE
     Indication: BLOOD TESTOSTERONE DECREASED
     Dosage: 50 MG QOD, 100 MG ON OPPOSITE DAY (50 MG APPLIED TO UPPER BODY AND 50 MG APPLIED TO THIGH)
     Route: 061
     Dates: start: 201612, end: 20161215
  4. ELIQUIS [Concomitant]
     Active Substance: APIXABAN
     Indication: PROPHYLAXIS
     Dosage: UNK
     Route: 048
     Dates: start: 2011

REACTIONS (2)
  - Drug administered at inappropriate site [Recovered/Resolved]
  - Muscle tightness [Not Recovered/Not Resolved]

NARRATIVE: CASE EVENT DATE: 201612
